FAERS Safety Report 21369595 (Version 8)
Quarter: 2023Q2

REPORT INFORMATION
  Report Type: Report from Study
  Country: BR (occurrence: BR)
  Receive Date: 20220923
  Receipt Date: 20230613
  Transmission Date: 20230721
  Serious: Yes (Other)
  Sender: FDA-Public Use
  Company Number: BR-NOVARTISPH-NVSC2022BR208066

PATIENT
  Age: 45 Year
  Sex: Female

DRUGS (7)
  1. KISQALI [Suspect]
     Active Substance: RIBOCICLIB
     Indication: Breast cancer
     Dosage: UNK, 21D
     Route: 065
  2. KISQALI [Suspect]
     Active Substance: RIBOCICLIB
     Dosage: UNK
     Route: 065
  3. KISQALI [Suspect]
     Active Substance: RIBOCICLIB
     Dosage: 3 DOSAGE FORM
     Route: 065
  4. KISQALI [Suspect]
     Active Substance: RIBOCICLIB
     Dosage: 2 DOSAGE FORM
     Route: 065
  5. KISQALI [Suspect]
     Active Substance: RIBOCICLIB
     Dosage: 2 DOSAGE FORM
     Route: 065
     Dates: start: 20221220
  6. KISQALI [Suspect]
     Active Substance: RIBOCICLIB
     Dosage: UNK
     Route: 065
  7. ANASTROZOLE [Concomitant]
     Active Substance: ANASTROZOLE
     Indication: Hormone therapy
     Dosage: UNK
     Route: 042
     Dates: start: 202207

REACTIONS (24)
  - Drug-induced liver injury [Recovered/Resolved]
  - Metastases to bone [Unknown]
  - Hepatitis [Unknown]
  - Spinal disorder [Unknown]
  - Spinal pain [Unknown]
  - Feeling hot [Not Recovered/Not Resolved]
  - Hepatic mass [Unknown]
  - Pain [Unknown]
  - Bone pain [Unknown]
  - Decreased immune responsiveness [Recovered/Resolved]
  - Decreased immune responsiveness [Recovered/Resolved]
  - Decreased immune responsiveness [Unknown]
  - Eating disorder [Not Recovered/Not Resolved]
  - Malaise [Unknown]
  - Eye colour change [Not Recovered/Not Resolved]
  - Hepatitis A [Unknown]
  - General physical health deterioration [Unknown]
  - Chromaturia [Unknown]
  - Hepatic enzyme abnormal [Unknown]
  - Asthenia [Unknown]
  - Platelet count decreased [Recovered/Resolved]
  - Dizziness [Recovered/Resolved]
  - Pyrexia [Recovered/Resolved]
  - Inappropriate schedule of product administration [Recovered/Resolved]

NARRATIVE: CASE EVENT DATE: 20221214
